FAERS Safety Report 5755156-5 (Version None)
Quarter: 2008Q2

REPORT INFORMATION
  Report Type: 
  Country: None (occurrence: None)
  Receive Date: 20080528
  Receipt Date: 20080512
  Transmission Date: 20081010
  Serious: Yes (Other)
  Sender: FDA-Public Use
  Company Number: CHPA2008US07961

PATIENT
  Age: 82 Year
  Sex: Female

DRUGS (3)
  1. EXCEDRIN (MIGRAINE) [Suspect]
     Indication: PSYCHIATRIC SYMPTOM
     Dosage: 2 DF, ONCE/SINGLE, ORAL
     Route: 048
  2. METFORMIN HCL [Concomitant]
  3. LIPITOR [Concomitant]

REACTIONS (3)
  - ACTIVITIES OF DAILY LIVING IMPAIRED [None]
  - FEELING ABNORMAL [None]
  - PSYCHIATRIC SYMPTOM [None]
